FAERS Safety Report 17039608 (Version 3)
Quarter: 2022Q1

REPORT INFORMATION
  Report Type: Report from Study
  Country: NL (occurrence: NL)
  Receive Date: 20191115
  Receipt Date: 20220104
  Transmission Date: 20220423
  Serious: Yes (Other)
  Sender: FDA-Public Use
  Company Number: NL-EXELIXIS-XL18419025187

PATIENT

DRUGS (10)
  1. CABOZANTINIB [Suspect]
     Active Substance: CABOZANTINIB
     Indication: Salivary gland cancer
     Dosage: 60 MG, QD
     Dates: start: 20181011
  2. CABOZANTINIB [Suspect]
     Active Substance: CABOZANTINIB
     Dosage: 40 MG
     Dates: start: 20181029
  3. CABOZANTINIB [Suspect]
     Active Substance: CABOZANTINIB
     Dosage: 20 MG
     Dates: start: 20181210, end: 20191106
  4. CALCIUM [Concomitant]
     Active Substance: CALCIUM
  5. ESOMEPRAZOLE [Concomitant]
     Active Substance: ESOMEPRAZOLE
  6. FENTANYL [Concomitant]
     Active Substance: FENTANYL
  7. FRESUBIN [Concomitant]
     Active Substance: AMINO ACIDS\DEXTROSE\ELECTROLYTES NOS\SOYBEAN OIL\VITAMINS
  8. GABAPENTIN [Concomitant]
     Active Substance: GABAPENTIN
  9. METOCLOPRAMIDE [Concomitant]
     Active Substance: METOCLOPRAMIDE
  10. Calmurid [Concomitant]

REACTIONS (1)
  - Pharyngeal ulceration [Not Recovered/Not Resolved]

NARRATIVE: CASE EVENT DATE: 20190826
